FAERS Safety Report 16859403 (Version 2)
Quarter: 2019Q4

REPORT INFORMATION
  Report Type: Spontaneous
  Country: US (occurrence: US)
  Receive Date: 20190927
  Receipt Date: 20191217
  Transmission Date: 20200122
  Serious: No
  Sender: FDA-Public Use
  Company Number: US-009507513-1909USA005421

PATIENT
  Sex: Female

DRUGS (1)
  1. CELESTONE SOLUSPAN [Suspect]
     Active Substance: BETAMETHASONE ACETATE\BETAMETHASONE SODIUM PHOSPHATE
     Dosage: 2 DOSES

REACTIONS (1)
  - Maternal exposure during pregnancy [Recovered/Resolved]
